FAERS Safety Report 12345266 (Version 4)
Quarter: 2016Q3

REPORT INFORMATION
  Report Type: Spontaneous
  Country: US (occurrence: US)
  Receive Date: 20160507
  Receipt Date: 20160713
  Transmission Date: 20161109
  Serious: Yes (Life-Threatening)
  Sender: FDA-Public Use
  Company Number: US-JNJFOC-20160405620

PATIENT
  Age: 78 Year
  Sex: Male
  Weight: 78.93 kg

DRUGS (7)
  1. PACERONE [Concomitant]
     Active Substance: AMIODARONE HYDROCHLORIDE
     Indication: ATRIAL FIBRILLATION
     Route: 065
  2. VITAMIN B12 [Concomitant]
     Active Substance: CYANOCOBALAMIN
     Route: 065
  3. LEVETIRACETAM. [Concomitant]
     Active Substance: LEVETIRACETAM
     Route: 065
  4. ACETYLSALICYLIC ACID [Suspect]
     Active Substance: ASPIRIN
     Indication: ATRIAL FIBRILLATION
     Route: 048
  5. XARELTO [Suspect]
     Active Substance: RIVAROXABAN
     Indication: CEREBROVASCULAR ACCIDENT PROPHYLAXIS
     Route: 048
     Dates: start: 20121105, end: 20160402
  6. LIPITOR [Concomitant]
     Active Substance: ATORVASTATIN CALCIUM
     Indication: LIPIDS INCREASED
     Route: 065
  7. XARELTO [Suspect]
     Active Substance: RIVAROXABAN
     Indication: ATRIAL FIBRILLATION
     Route: 048
     Dates: start: 20121105, end: 20160402

REACTIONS (3)
  - Subdural haematoma [Recovering/Resolving]
  - Head injury [Recovering/Resolving]
  - Fall [Recovering/Resolving]

NARRATIVE: CASE EVENT DATE: 201602
